FAERS Safety Report 21354940 (Version 2)
Quarter: 2022Q3

REPORT INFORMATION
  Report Type: Report from Study
  Country: BR (occurrence: BR)
  Receive Date: 20220920
  Receipt Date: 20220926
  Transmission Date: 20221027
  Serious: Yes (Hospitalization, Other)
  Sender: FDA-Public Use
  Company Number: BR-MYLANLABS-2022M1094650

PATIENT
  Age: 90 Year
  Sex: Female
  Weight: 83 kg

DRUGS (4)
  1. CLOZAPINE [Suspect]
     Active Substance: CLOZAPINE
     Indication: Product used for unknown indication
     Dosage: 25 MILLIGRAM, QD
     Route: 065
     Dates: start: 20210115
  2. CLOZAPINE [Suspect]
     Active Substance: CLOZAPINE
     Dosage: 25 MILLIGRAM, QD (G-TUBE THROUGH THE STOMACH)
     Route: 065
     Dates: start: 202206
  3. CLOZAPINE [Suspect]
     Active Substance: CLOZAPINE
     Indication: Product used for unknown indication
     Dosage: 100 MILLIGRAM, QD
     Route: 065
     Dates: start: 20210115
  4. CLOZAPINE [Suspect]
     Active Substance: CLOZAPINE
     Dosage: 100 MILLIGRAM, QD (G-TUBE THROUGH THE STOMACH)
     Route: 065
     Dates: start: 202206

REACTIONS (10)
  - Pneumonia [Unknown]
  - COVID-19 [Unknown]
  - Aspiration [Unknown]
  - Dementia Alzheimer^s type [Unknown]
  - Gastric disorder [Unknown]
  - Feeding disorder [Unknown]
  - Wrong technique in product usage process [Unknown]
  - Product availability issue [Unknown]
  - Bedridden [Unknown]
  - Off label use [Unknown]

NARRATIVE: CASE EVENT DATE: 20220510
